FAERS Safety Report 9222740 (Version 1)
Quarter: 2013Q1

REPORT INFORMATION
  Report Type: Spontaneous
  Country: US (occurrence: None)
  Receive Date: 20120914
  Receipt Date: 20120914
  Transmission Date: 20140127
  Serious: Yes (Other)
  Sender: FDA-Public Use
  Company Number: JPI-P-022226

PATIENT
  Age: 29 Year
  Sex: Female
  Weight: 94.8 kg

DRUGS (3)
  1. XYREM (500 MILLIGRAM/ MILLILITERS, SOLUTION) (SODIUM OXYBATE) [Suspect]
     Indication: NARCOLEPSY
     Route: 048
     Dates: start: 20111007
  2. ARMODAFINIL [Suspect]
     Indication: NARCOLEPSY
     Dates: start: 2012
  3. DEXTROAMPHETAMINE AND AMPHETAMINE [Concomitant]

REACTIONS (3)
  - Blood pressure increased [None]
  - Dizziness [None]
  - Nausea [None]
